FAERS Safety Report 12171225 (Version 1)
Quarter: 2016Q1

REPORT INFORMATION
  Report Type: Spontaneous
  Country: US (occurrence: None)
  Receive Date: 20160310
  Receipt Date: 20160310
  Transmission Date: 20160526
  Serious: Yes (Other)
  Sender: FDA-Public Use
  Company Number: None

PATIENT
  Age: 62 Year
  Sex: Male
  Weight: 0 kg

DRUGS (1)
  1. MYCOPHENOLAT [Suspect]
     Active Substance: MYCOPHENOLATE MOFETIL
     Indication: RENAL TRANSPLANT
     Dosage: ORAL 047 250MG ORAL BID 3 CAPSULES TWICE A DAY
     Route: 048

REACTIONS (1)
  - Tremor [None]

NARRATIVE: CASE EVENT DATE: 20160309
